FAERS Safety Report 4447427-X (Version None)
Quarter: 2004Q3

REPORT INFORMATION
  Report Type: 
  Country: None (occurrence: None)
  Receive Date: 20040823
  Receipt Date: 20040428
  Transmission Date: 20050211
  Serious: No
  Sender: FDA-Public Use
  Company Number: PHEH2004US04670

PATIENT
  Age: 52 Year
  Sex: Female

DRUGS (2)
  1. ZELNORM [Suspect]
     Indication: IMPAIRED GASTRIC EMPTYING
     Dosage: 6 MG BID ORAL
     Route: 048
     Dates: start: 20040301
  2. ZELNORM [Suspect]
     Indication: IMPAIRED GASTRIC EMPTYING
     Dosage: 6 MG BID ORAL
     Route: 048
     Dates: start: 20040417

REACTIONS (4)
  - GASTROENTERITIS VIRAL [None]
  - PRURITUS [None]
  - RASH [None]
  - URTICARIA [None]
